FAERS Safety Report 16297048 (Version 1)
Quarter: 2019Q2

REPORT INFORMATION
  Report Type: Spontaneous
  Country: GB (occurrence: GB)
  Receive Date: 20190510
  Receipt Date: 20190510
  Transmission Date: 20190711
  Serious: Yes (Other)
  Sender: FDA-Public Use
  Company Number: GB-ABBVIE-19K-167-2773088-00

PATIENT
  Age: 38 Year
  Sex: Female
  Weight: 67 kg

DRUGS (1)
  1. HUMIRA [Suspect]
     Active Substance: ADALIMUMAB
     Indication: PSORIASIS
     Route: 058
     Dates: start: 20160406

REACTIONS (2)
  - Tuberculosis [Recovering/Resolving]
  - Hyperhidrosis [Unknown]

NARRATIVE: CASE EVENT DATE: 20160406
